FAERS Safety Report 7478964-1 (Version None)
Quarter: 2011Q2

REPORT INFORMATION
  Report Type: 
  Country: None (occurrence: None)
  Receive Date: 20110513
  Receipt Date: 20110511
  Transmission Date: 20111010
  Serious: Yes (Life-Threatening, Hospitalization)
  Sender: FDA-Public Use
  Company Number: US-ABBOTT-11P-163-0719989-01

PATIENT
  Sex: Male

DRUGS (9)
  1. CEFTIN [Concomitant]
     Indication: RENAL FAILURE ACUTE
     Dates: start: 20100926
  2. HUMIRA [Suspect]
     Route: 058
     Dates: start: 20101101
  3. CELECOXIB [Concomitant]
     Indication: PRODUCT USED FOR UNKNOWN INDICATION
  4. HUMIRA [Suspect]
     Indication: PSORIASIS
     Route: 058
     Dates: start: 20100421, end: 20100421
  5. FLUCONAZOLE [Concomitant]
     Indication: RENAL FAILURE ACUTE
     Dates: start: 20100926
  6. HUMIRA [Suspect]
     Route: 058
     Dates: end: 20100908
  7. COMMERCIAL HUMIRA (ADALIMUMAB) [Concomitant]
     Indication: PRODUCT USED FOR UNKNOWN INDICATION
     Dates: start: 20100317
  8. PROTONIX [Concomitant]
     Indication: DUODENAL ULCER
     Dates: start: 20100926
  9. ASPIRIN [Concomitant]
     Indication: PROPHYLAXIS

REACTIONS (1)
  - CEREBROVASCULAR ACCIDENT [None]
